FAERS Safety Report 15790460 (Version 2)
Quarter: 2019Q1

REPORT INFORMATION
  Report Type: Spontaneous
  Country: NL (occurrence: NL)
  Receive Date: 20190104
  Receipt Date: 20190201
  Transmission Date: 20190417
  Serious: Yes (Hospitalization)
  Sender: FDA-Public Use
  Company Number: NL-ALLERGAN-1859383US

PATIENT
  Age: 36 Year
  Sex: Male

DRUGS (6)
  1. FAMPYRA [Concomitant]
     Active Substance: DALFAMPRIDINE
     Dosage: UNK
  2. EUTHYROX [Concomitant]
     Active Substance: LEVOTHYROXINE SODIUM
     Dosage: 88 ?G, UNK
  3. BACLOFEN. [Concomitant]
     Active Substance: BACLOFEN
     Dosage: 10 MG, QD
     Route: 065
  4. BACLOFEN. [Concomitant]
     Active Substance: BACLOFEN
     Dosage: 15 MG, QD
     Route: 065
  5. BOTOX [Suspect]
     Active Substance: ONABOTULINUMTOXINA
     Indication: MUSCLE SPASTICITY
     Dosage: ACTUAL: 50 IU IN THE VASTUS INTERMEDIUS LEFT AND RIGHT, 50 IU IN THE SOLEUS, LEFT AND RIGHT
     Route: 030
     Dates: start: 20181122, end: 20181122
  6. BACLOFEN. [Concomitant]
     Active Substance: BACLOFEN
     Dosage: 5 MG, QD

REACTIONS (7)
  - General physical health deterioration [Not Recovered/Not Resolved]
  - Off label use [Unknown]
  - Paresis [Not Recovered/Not Resolved]
  - Ataxia [Not Recovered/Not Resolved]
  - Ataxia [Recovering/Resolving]
  - Clonus [Not Recovered/Not Resolved]
  - Injection site pain [Not Recovered/Not Resolved]

NARRATIVE: CASE EVENT DATE: 20181122
